FAERS Safety Report 26177234 (Version 1)
Quarter: 2025Q4

REPORT INFORMATION
  Report Type: Spontaneous
  Country: US (occurrence: US)
  Receive Date: 20251219
  Receipt Date: 20251219
  Transmission Date: 20260117
  Serious: No
  Sender: ALVOGEN
  Company Number: US-ALVOGEN-2025098862

PATIENT
  Age: 71 Year
  Sex: Female

DRUGS (2)
  1. FENTANYL [Suspect]
     Active Substance: FENTANYL
     Indication: Pain
  2. FENTANYL [Suspect]
     Active Substance: FENTANYL
     Indication: Pain
     Dosage: EXP. DATE: SEP-2027, ISSUE WITH 3 PATCHES?STRENGTH: 75 MCG/HR
     Dates: start: 20250910

REACTIONS (7)
  - Dyskinesia [Unknown]
  - Insomnia [Unknown]
  - Vomiting [Unknown]
  - Product use issue [Unknown]
  - Product dose omission issue [Unknown]
  - Device physical property issue [Unknown]
  - Device defective [Unknown]

NARRATIVE: CASE EVENT DATE: 20250101
